FAERS Safety Report 16207891 (Version 10)
Quarter: 2023Q4

REPORT INFORMATION
  Report Type: Report from Study
  Country: US (occurrence: US)
  Receive Date: 20190417
  Receipt Date: 20231013
  Transmission Date: 20240110
  Serious: Yes (Other)
  Sender: FDA-Public Use
  Company Number: US-PFIZER INC-2018346057

PATIENT
  Sex: Male
  Weight: 113 kg

DRUGS (18)
  1. LYRICA [Suspect]
     Active Substance: PREGABALIN
     Indication: Neuropathy peripheral
     Dosage: 200 MG, 2X/DAY REGIMEN DOSE UNIT: MILLIGRAM
     Route: 048
  2. LYRICA [Suspect]
     Active Substance: PREGABALIN
     Indication: Neuralgia
  3. LYRICA [Suspect]
     Active Substance: PREGABALIN
     Indication: Guillain-Barre syndrome
  4. LYRICA [Suspect]
     Active Substance: PREGABALIN
     Indication: Stiff person syndrome
  5. PREDNISONE [Concomitant]
     Active Substance: PREDNISONE
     Indication: Guillain-Barre syndrome
     Dosage: 10 MG, 1X/DAY REGIMEN DOSE UNIT: MILLIGRAM
     Route: 048
  6. PREDNISONE [Concomitant]
     Active Substance: PREDNISONE
     Indication: Stiff person syndrome
     Dosage: 60 MG, UNK
     Route: 065
  7. PREDNISONE [Concomitant]
     Active Substance: PREDNISONE
     Indication: Neuropathy peripheral
     Dosage: 50 MG, UNK
     Route: 065
  8. PREDNISONE [Concomitant]
     Active Substance: PREDNISONE
     Indication: Neuralgia
     Dosage: 30 MG, UNK
     Route: 065
  9. PREDNISONE [Concomitant]
     Active Substance: PREDNISONE
     Dosage: 10 MG, DAILY
     Route: 065
  10. DILANTIN [Concomitant]
     Active Substance: PHENYTOIN
     Indication: Guillain-Barre syndrome
     Dosage: 100 MG, 1X/DAY REGIMEN DOSE UNIT: MILLIGRAM
     Route: 065
  11. DILANTIN [Concomitant]
     Active Substance: PHENYTOIN
     Indication: Neuropathy peripheral
  12. DILANTIN [Concomitant]
     Active Substance: PHENYTOIN
     Indication: Neuralgia
  13. DILANTIN [Concomitant]
     Active Substance: PHENYTOIN
     Indication: Stiff person syndrome
  14. TOPAMAX [Concomitant]
     Active Substance: TOPIRAMATE
     Indication: Guillain-Barre syndrome
     Dosage: 200 MG, 2X/DAY REGIMEN DOSE UNIT: MILLIGRAM
     Route: 048
  15. TOPAMAX [Concomitant]
     Active Substance: TOPIRAMATE
     Indication: Neuropathy peripheral
  16. TOPAMAX [Concomitant]
     Active Substance: TOPIRAMATE
     Indication: Neuralgia
  17. TOPAMAX [Concomitant]
     Active Substance: TOPIRAMATE
     Indication: Stiff person syndrome
  18. VALIUM [Concomitant]
     Active Substance: DIAZEPAM
     Dosage: UNK
     Route: 065

REACTIONS (5)
  - Drug dependence [Unknown]
  - Cardiac failure [Unknown]
  - Personality disorder [Unknown]
  - Visual impairment [Unknown]
  - Insomnia [Unknown]
